FAERS Safety Report 15565825 (Version 3)
Quarter: 2019Q2

REPORT INFORMATION
  Report Type: Spontaneous
  Country: US (occurrence: US)
  Receive Date: 20181030
  Receipt Date: 20190614
  Transmission Date: 20190711
  Serious: Yes (Hospitalization, Other)
  Sender: FDA-Public Use
  Company Number: US-PFIZER INC-2017123658

PATIENT
  Age: 65 Year
  Sex: Female
  Weight: 48 kg

DRUGS (24)
  1. ASPIRIN 81 [Concomitant]
     Active Substance: ASPIRIN
     Dosage: 81 MG, 1X/DAY
     Route: 048
  2. GLIMEPIRIDE. [Concomitant]
     Active Substance: GLIMEPIRIDE
     Indication: DIABETES MELLITUS
     Dosage: 2 MG, 2X/DAY
     Route: 048
  3. AMLODIPINE [Concomitant]
     Active Substance: AMLODIPINE BESYLATE
     Dosage: 10 MG, DAILY
     Route: 048
  4. HYDRALAZINE [Concomitant]
     Active Substance: HYDRALAZINE HYDROCHLORIDE
     Dosage: 10 MG, 3X/DAY
     Route: 048
  5. HYDROXYZINE HYDROCHLORIDE. [Concomitant]
     Active Substance: HYDROXYZINE HYDROCHLORIDE
     Dosage: 25 MG, AS NEEDED(1 TAB, PO, QHS (EVERY BEDTIME) PRN (WHEN NECESSARY)
     Route: 048
  6. XELJANZ [Suspect]
     Active Substance: TOFACITINIB CITRATE
     Indication: RHEUMATOID ARTHRITIS
     Dosage: 5 MG, 2X/DAY
     Route: 048
     Dates: start: 2015
  7. RANITIDINE. [Concomitant]
     Active Substance: RANITIDINE
     Indication: GASTROOESOPHAGEAL REFLUX DISEASE
     Dosage: 150 MG, 2X/DAY
     Route: 048
  8. GABAPENTIN. [Concomitant]
     Active Substance: GABAPENTIN
     Indication: NEUROPATHY PERIPHERAL
     Dosage: 300 MG, 1X/DAY[1 TIME DAILY AT NIGHT]
     Route: 048
  9. NAPROXEN. [Concomitant]
     Active Substance: NAPROXEN
     Indication: PAIN
     Dosage: 500 MG, AS NEEDED (DAILY)
     Route: 048
  10. DORZOLAMIDE/TIMOLOL [Concomitant]
     Active Substance: DORZOLAMIDE\TIMOLOL
     Dosage: 2 GTT, 1X/DAY (DORZOLAMIDE 2.23%, TIMOLOL MALEATE 0.68%)
     Route: 047
  11. ALBUTEROL. [Concomitant]
     Active Substance: ALBUTEROL
     Dosage: UNK UNK, AS NEEDED (2 PUFF, INHALATION, Q4H (EVERY 4 HOURS)/ 90 MCG/INH
     Route: 055
  12. LISINOPRIL. [Concomitant]
     Active Substance: LISINOPRIL
     Indication: HYPERTENSION
     Dosage: 5 MG, UNK
     Route: 048
  13. BRIMONIDINE [Concomitant]
     Active Substance: BRIMONIDINE TARTRATE
     Dosage: 2 GTT, 1X/DAY
     Route: 047
  14. XELJANZ [Suspect]
     Active Substance: TOFACITINIB CITRATE
     Dosage: 5 MG, 2X/DAY(BID (TWICE A DAY)
     Route: 048
     Dates: start: 201610, end: 20180630
  15. XELJANZ [Suspect]
     Active Substance: TOFACITINIB CITRATE
     Dosage: 5 MG, 2X/DAY
     Route: 048
     Dates: start: 201807, end: 2018
  16. METFORMIN [Concomitant]
     Active Substance: METFORMIN HYDROCHLORIDE
     Indication: DIABETES MELLITUS
     Dosage: 500 MG, 2X/DAY
     Route: 048
  17. AMLODIPINE [Concomitant]
     Active Substance: AMLODIPINE BESYLATE
     Indication: HYPERTENSION
     Dosage: 10 MG, 1X/DAY
     Route: 048
  18. METOPROLOL TARTRATE. [Concomitant]
     Active Substance: METOPROLOL TARTRATE
     Dosage: 50 MG, 2X/DAY
     Route: 048
  19. PREDNISONE. [Concomitant]
     Active Substance: PREDNISONE
     Indication: RHEUMATOID ARTHRITIS
     Dosage: 5 MG, AS NEEDED
     Route: 048
  20. PEPCID [Concomitant]
     Active Substance: FAMOTIDINE
     Dosage: 40 MG, ALTERNATE DAY
     Route: 048
  21. LATANOPROST. [Concomitant]
     Active Substance: LATANOPROST
     Dosage: 2 GTT, 1X/DAY QHS (EVERY BEDTIME)
     Route: 047
  22. LISINOPRIL. [Concomitant]
     Active Substance: LISINOPRIL
     Dosage: UNK (1/2 TABLET 1 TIME DAILY)
  23. INSULIN LISPRO [Concomitant]
     Active Substance: INSULIN LISPRO
     Dosage: UNK, 2X/DAY(AC (AFTER MEALS) AND HS (BEFORE MEALS)
     Route: 058
  24. ROSUVASTATIN. [Concomitant]
     Active Substance: ROSUVASTATIN
     Dosage: 20 MG, 1X/DAY
     Route: 048

REACTIONS (27)
  - Internal haemorrhage [Unknown]
  - Anaemia [Unknown]
  - Haematotoxicity [Unknown]
  - Gastrointestinal haemorrhage [Recovered/Resolved]
  - Pulmonary oedema [Unknown]
  - Pain in extremity [Unknown]
  - Renal failure [Recovered/Resolved]
  - Acidosis [Unknown]
  - Clostridium difficile colitis [Unknown]
  - Blood loss anaemia [Recovering/Resolving]
  - Thrombocytopenia [Unknown]
  - Diarrhoea [Recovered/Resolved]
  - Aphasia [Unknown]
  - Acute myocardial infarction [Unknown]
  - Supraventricular tachycardia [Recovering/Resolving]
  - Gastroenteritis [Recovered/Resolved]
  - Septic shock [Recovered/Resolved]
  - Lethargy [Unknown]
  - Hyperkalaemia [Unknown]
  - Metabolic acidosis [Recovering/Resolving]
  - Sciatica [Unknown]
  - Sepsis [Recovered/Resolved]
  - Intervertebral disc disorder [Unknown]
  - Respiratory failure [Unknown]
  - Limb discomfort [Unknown]
  - Gait disturbance [Unknown]
  - Back pain [Unknown]

NARRATIVE: CASE EVENT DATE: 2018
